FAERS Safety Report 15861931 (Version 3)
Quarter: 2019Q2

REPORT INFORMATION
  Report Type: Spontaneous
  Country: US (occurrence: US)
  Receive Date: 20190124
  Receipt Date: 20190624
  Transmission Date: 20190711
  Serious: No
  Sender: FDA-Public Use
  Company Number: US-PFIZER INC-2019027004

PATIENT
  Age: 55 Year
  Sex: Female
  Weight: 111.11 kg

DRUGS (4)
  1. TRIAMCINOLONE [Concomitant]
     Active Substance: TRIAMCINOLONE
     Dosage: UNK (INSTN)
  2. EUCRISA [Suspect]
     Active Substance: CRISABOROLE
     Indication: DERMATITIS ATOPIC
     Dosage: UNK
     Route: 061
     Dates: start: 20190107, end: 20190117
  3. EUCRISA [Suspect]
     Active Substance: CRISABOROLE
     Indication: DERMATITIS
     Dosage: UNK
     Route: 061
  4. EUCRISA [Suspect]
     Active Substance: CRISABOROLE
     Indication: RASH
     Dosage: UNK, 2X/DAY (APPLY DAILY TO FACE ADVANCE TO BID (TWO TIMES IN A DAY) AS TOLERATED.)
     Route: 061
     Dates: start: 20181130, end: 20190117

REACTIONS (7)
  - Application site pustules [Not Recovered/Not Resolved]
  - Application site pruritus [Not Recovered/Not Resolved]
  - Skin burning sensation [Recovered/Resolved]
  - Discomfort [Unknown]
  - Pain of skin [Recovered/Resolved]
  - Application site swelling [Not Recovered/Not Resolved]
  - Application site pain [Recovered/Resolved]

NARRATIVE: CASE EVENT DATE: 201901
